FAERS Safety Report 7931131-7 (Version None)
Quarter: 2011Q4

REPORT INFORMATION
  Report Type: 
  Country: None (occurrence: None)
  Receive Date: 20111121
  Receipt Date: 20111109
  Transmission Date: 20120403
  Serious: Yes (Other)
  Sender: FDA-Public Use
  Company Number: US-ALEXION-A201101636

PATIENT
  Sex: Male

DRUGS (14)
  1. CALCIUM CARBONATE [Concomitant]
     Dosage: 750 MG TID
     Route: 048
  2. ENALAPRIL MALEATE [Concomitant]
     Dosage: 1 3 ML BID
     Route: 048
  3. LOSARTAN [Concomitant]
     Dosage: 2.M MG/ML, 4 ML QD
     Route: 048
  4. CALCITRIOL [Concomitant]
     Dosage: 0.25 MCG QD
  5. MULTIVITAMIN AND MINERAL [Concomitant]
     Dosage: UNK QD
     Route: 048
  6. PENICILLIN V POTASSIUM [Concomitant]
     Dosage: 250 MG BID
     Route: 048
  7. PROGRAF [Concomitant]
     Dosage: 4 MG BID
  8. OMEPRAZOLE [Concomitant]
     Dosage: 20 MG QD
     Route: 048
  9. ACETAMINOPHEN W/ CODEINE [Concomitant]
     Dosage: 120-12MG/ML, 5 ML Q 4-6 HOURS PRN
  10. SOLIRIS [Suspect]
     Indication: HAEMOLYTIC URAEMIC SYNDROME
     Dosage: 600 MG QW X 3 WEEKS
     Route: 042
     Dates: start: 20111019
  11. TORSEMIDE [Concomitant]
     Dosage: 5 MG BID
     Route: 048
  12. ZANTAC [Concomitant]
     Dosage: 25 MG/ML, 75 MG BID
     Route: 048
  13. VITAMIN D [Concomitant]
     Dosage: 1000 UNITS QD
     Route: 048
  14. LIDOCAINE/PRILOCAINE [Concomitant]
     Dosage: APPLY TO IV SITE
     Route: 061

REACTIONS (2)
  - URTICARIA [None]
  - NASOPHARYNGITIS [None]
